FAERS Safety Report 4524426-0 (Version None)
Quarter: 2004Q4

REPORT INFORMATION
  Report Type: 
  Country: None (occurrence: None)
  Receive Date: 20041116
  Receipt Date: 20041025
  Transmission Date: 20050328
  Serious: Yes (Other)
  Sender: FDA-Public Use
  Company Number: PHEH2004US08284

PATIENT
  Age: 45 Year
  Sex: Female

DRUGS (3)
  1. GLEEVEC [Suspect]
     Indication: CHRONIC MYELOID LEUKAEMIA
     Dosage: 400 MG, QD, ORAL
     Route: 048
     Dates: start: 20021209
  2. POTASSIUM (POTASSIUM) [Concomitant]
  3. MULTIVITAMINS, PLAIN [Concomitant]

REACTIONS (1)
  - BONE MARROW DEPRESSION [None]
